FAERS Safety Report 5795906-5 (Version None)
Quarter: 2008Q3

REPORT INFORMATION
  Report Type: 
  Country: None (occurrence: None)
  Receive Date: 20080701
  Receipt Date: 20080317
  Transmission Date: 20090109
  Serious: No
  Sender: FDA-Public Use
  Company Number: US-BAYER-200817419NA

PATIENT
  Age: 19 Year
  Sex: Female
  Weight: 85 kg

DRUGS (1)
  1. MIRENA [Suspect]
     Indication: CONTRACEPTION
     Route: 015
     Dates: start: 20080123, end: 20080317

REACTIONS (7)
  - ABDOMINAL DISCOMFORT [None]
  - GENITAL HAEMORRHAGE [None]
  - HEADACHE [None]
  - INTRA-UTERINE CONTRACEPTIVE DEVICE EXPELLED [None]
  - MEDICAL DEVICE COMPLICATION [None]
  - MENSTRUATION DELAYED [None]
  - NAUSEA [None]
